FAERS Safety Report 5312531-0 (Version None)
Quarter: 2007Q2

REPORT INFORMATION
  Report Type: 
  Country: None (occurrence: None)
  Receive Date: 20070430
  Receipt Date: 20070122
  Transmission Date: 20071010
  Serious: No
  Sender: FDA-Public Use
  Company Number: 2007UW01299

PATIENT
  Age: 59 Year
  Sex: Female
  Weight: 64.9 kg

DRUGS (5)
  1. NEXIUM [Suspect]
     Route: 048
  2. PROZAC [Concomitant]
  3. FOSAMAX [Concomitant]
  4. VITAMIN CAP [Concomitant]
  5. HERBAL PRODUCTS [Concomitant]

REACTIONS (1)
  - BONE DENSITY DECREASED [None]
